FAERS Safety Report 7032268-X (Version None)
Quarter: 2010Q4

REPORT INFORMATION
  Report Type: 
  Country: None (occurrence: None)
  Receive Date: 20101007
  Receipt Date: 20100409
  Transmission Date: 20110411
  Serious: Yes (Hospitalization)
  Sender: FDA-Public Use
  Company Number: US-BRISTOL-MYERS SQUIBB COMPANY-15067333

PATIENT
  Age: 43 Year
  Sex: Female
  Weight: 66 kg

DRUGS (13)
  1. CETUXIMAB [Suspect]
     Indication: NON-SMALL CELL LUNG CANCER
     Dosage: RECENT INF:31MAR10,NO OF INF:19.
     Route: 042
     Dates: start: 20091118, end: 20100331
  2. CARBOPLATIN [Suspect]
     Indication: NON-SMALL CELL LUNG CANCER
     Dosage: RECENT INF:31MAR10, NO OF INF:7.
     Route: 042
     Dates: start: 20091118, end: 20100331
  3. PEMETREXED DISODIUM [Suspect]
     Indication: NON-SMALL CELL LUNG CANCER
     Dosage: RECENT INF:31MAR10, NO OF INF:7.
     Route: 042
     Dates: start: 20091118, end: 20100331
  4. MAGNESIUM OXIDE [Concomitant]
     Dosage: FORMULATION:TAB, DOSAGE:4 TAB/DAY.
     Route: 048
     Dates: start: 20100127
  5. CELEXA [Concomitant]
     Route: 048
  6. FOLIC ACID [Concomitant]
     Route: 048
  7. ZOFRAN [Concomitant]
     Dosage: DOSAGE: DAILY AT BEDTIME.
     Route: 048
  8. ATIVAN [Concomitant]
     Dosage: DOSAGE:EVERY 8 HRS AS NEEDED.
     Route: 048
  9. ROBITUSSIN AC [Concomitant]
     Indication: COUGH
     Dosage: DOSAGE:1 TSP EVERY 6HRS AS NEEDED.
     Route: 048
     Dates: start: 20100331
  10. LORAZEPAM [Concomitant]
     Indication: ANXIETY
     Route: 048
     Dates: start: 20100217, end: 20100418
  11. CEPHALEXIN [Concomitant]
     Dates: start: 20100210
  12. FLAGYL [Concomitant]
     Indication: CLOSTRIDIAL INFECTION
     Route: 048
  13. VITAMIN B-12 [Concomitant]
     Indication: PROPHYLAXIS
     Route: 030
     Dates: start: 20091116, end: 20100331

REACTIONS (1)
  - ANAEMIA [None]
